FAERS Safety Report 7882121-4 (Version None)
Quarter: 2011Q4

REPORT INFORMATION
  Report Type: 
  Country: None (occurrence: None)
  Receive Date: 20111101
  Receipt Date: 20110609
  Transmission Date: 20120403
  Serious: No
  Sender: FDA-Public Use
  Company Number: US-AMGEN-USASP2010009267

PATIENT
  Age: 52 Year
  Sex: Female

DRUGS (1)
  1. ENBREL [Suspect]
     Indication: PSORIATIC ARTHROPATHY
     Dosage: 50 MG, 2 TIMES/WK
     Route: 058
     Dates: start: 20101102, end: 20101215

REACTIONS (5)
  - PRURITUS GENERALISED [None]
  - INJECTION SITE MACULE [None]
  - INJECTION SITE SWELLING [None]
  - INJECTION SITE REACTION [None]
  - PSORIASIS [None]
